FAERS Safety Report 25613450 (Version 1)
Quarter: 2025Q3

REPORT INFORMATION
  Report Type: Spontaneous
  Country: BR (occurrence: BR)
  Receive Date: 20250728
  Receipt Date: 20250728
  Transmission Date: 20251021
  Serious: Yes (Other)
  Sender: GENMAB
  Company Number: BR-ABBVIE-6384705

PATIENT
  Sex: Female

DRUGS (1)
  1. EPCORITAMAB [Suspect]
     Active Substance: EPCORITAMAB
     Indication: Diffuse large B-cell lymphoma
     Route: 058

REACTIONS (4)
  - Mass [Unknown]
  - Diffuse large B-cell lymphoma [Unknown]
  - Injury [Unknown]
  - Swelling [Unknown]
